FAERS Safety Report 17757138 (Version 1)
Quarter: 2020Q2

REPORT INFORMATION
  Report Type: Spontaneous
  Country: US (occurrence: US)
  Receive Date: 20200507
  Receipt Date: 20200507
  Transmission Date: 20200714
  Serious: Yes (Other)
  Sender: FDA-Public Use
  Company Number: US-BAUSCH-BL-2020-005189

PATIENT
  Age: 67 Year
  Sex: Male
  Weight: 113.5 kg

DRUGS (5)
  1. WELLBUTRIN XL [Suspect]
     Active Substance: BUPROPION HYDROCHLORIDE
     Dosage: PAST 10 YEARS,MAINTENANCE DOSE
     Route: 065
     Dates: end: 2019
  2. WELLBUTRIN XL [Suspect]
     Active Substance: BUPROPION HYDROCHLORIDE
     Indication: PRODUCT USED FOR UNKNOWN INDICATION
     Dosage: GLAXOSMITHKLINE
     Route: 065
  3. WELLBUTRIN XL [Suspect]
     Active Substance: BUPROPION HYDROCHLORIDE
     Indication: PRODUCT USED FOR UNKNOWN INDICATION
     Dosage: MID OF DEC/2019
     Route: 065
     Dates: start: 2019, end: 201912
  4. WELLBUTRIN XL [Suspect]
     Active Substance: BUPROPION HYDROCHLORIDE
     Route: 065
     Dates: start: 201912
  5. FLUTICASONE. [Concomitant]
     Active Substance: FLUTICASONE
     Indication: PRODUCT USED FOR UNKNOWN INDICATION
     Dosage: SPRAY, 27.5 MCG PER SPRAY, 2 PUFFS IN MORNING

REACTIONS (7)
  - Loss of personal independence in daily activities [Recovered/Resolved]
  - Drug ineffective [Unknown]
  - Product substitution issue [Unknown]
  - Depressed mood [Recovered/Resolved]
  - Asthenia [Recovered/Resolved]
  - Depressed level of consciousness [Recovered/Resolved]
  - Apathy [Recovered/Resolved]

NARRATIVE: CASE EVENT DATE: 2019
